FAERS Safety Report 9528521 (Version 2)
Quarter: 2013Q3

REPORT INFORMATION
  Report Type: Report from Study
  Country: JP (occurrence: JP)
  Receive Date: 20130917
  Receipt Date: 20130923
  Transmission Date: 20140515
  Serious: Yes (Hospitalization)
  Sender: FDA-Public Use
  Company Number: JP-EISAI INC-E3810-06654-CLI-JP

PATIENT
  Age: 76 Year
  Sex: Female
  Weight: 48 kg

DRUGS (13)
  1. E3810 (RABEPRAZOLE) [Suspect]
     Indication: PROPHYLAXIS AGAINST GASTROINTESTINAL ULCER
     Dosage: UNKNOWN
     Route: 048
     Dates: start: 20130313
  2. E3810 (RABEPRAZOLE) [Suspect]
     Indication: DUODENAL ULCER
  3. BAYASPIRIN [Concomitant]
     Indication: THROMBOSIS PROPHYLAXIS
     Route: 048
     Dates: start: 20060516
  4. BAYASPIRIN [Concomitant]
     Indication: INFARCTION
  5. CILOSTAZOL [Concomitant]
     Indication: THROMBOSIS PROPHYLAXIS
     Route: 048
     Dates: start: 20060916
  6. CILOSTAZOL [Concomitant]
     Indication: INFARCTION
  7. ASPARA-CA [Concomitant]
     Indication: OSTEOPOROSIS
     Route: 048
     Dates: start: 20080414
  8. ATORVASTATIN [Concomitant]
     Indication: HYPERLIPIDAEMIA
     Route: 048
     Dates: start: 20120926
  9. MOHRUS TAPE [Concomitant]
     Indication: OSTEOARTHRITIS
     Route: 065
     Dates: start: 20060116
  10. MOHRUS TAPE [Concomitant]
     Indication: SPINAL OSTEOARTHRITIS
  11. THYRADIN S [Concomitant]
     Indication: THYROID DISORDER
     Route: 048
  12. ALFAROL [Concomitant]
     Indication: THYROID DISORDER
     Route: 048
  13. LAMISIL [Concomitant]
     Indication: TINEA INFECTION
     Dosage: UNKNOWN
     Route: 048
     Dates: start: 20110608

REACTIONS (1)
  - Blood pressure increased [Recovering/Resolving]
